FAERS Safety Report 24138388 (Version 1)
Quarter: 2024Q3

REPORT INFORMATION
  Report Type: Spontaneous
  Country: US (occurrence: US)
  Receive Date: 20240725
  Receipt Date: 20240725
  Transmission Date: 20241016
  Serious: No
  Sender: BAUSCH AND LOMB
  Company Number: US-BAUSCH-BL-2024-011364

PATIENT
  Sex: Female

DRUGS (1)
  1. CABTREO [Suspect]
     Active Substance: ADAPALENE\BENZOYL PEROXIDE\CLINDAMYCIN PHOSPHATE
     Indication: Product used for unknown indication
     Dosage: 1.2/3.1/0.15 PERCENT
     Route: 061

REACTIONS (1)
  - Application site burn [Unknown]
